FAERS Safety Report 12079395 (Version 1)
Quarter: 2016Q1

REPORT INFORMATION
  Report Type: Spontaneous
  Country: US (occurrence: US)
  Receive Date: 20160216
  Receipt Date: 20160216
  Transmission Date: 20160526
  Serious: No
  Sender: FDA-Public Use
  Company Number: US-DRREDDYS-USA/USA/15/0050127

PATIENT
  Sex: Male

DRUGS (2)
  1. MINOCYCLINE HYDROCHLORIDE. [Suspect]
     Active Substance: MINOCYCLINE HYDROCHLORIDE
     Indication: ACNE
     Route: 065
  2. IBUPROFEN. [Concomitant]
     Active Substance: IBUPROFEN
     Indication: ARTHRALGIA
     Route: 065

REACTIONS (9)
  - Borrelia test positive [Recovered/Resolved]
  - Red blood cell sedimentation rate increased [Recovered/Resolved]
  - Antinuclear antibody positive [Recovered/Resolved]
  - Night sweats [Recovered/Resolved]
  - Nausea [Recovered/Resolved]
  - Hypersomnia [Recovered/Resolved]
  - Hypoaesthesia [Recovered/Resolved]
  - Weight decreased [Recovered/Resolved]
  - Hepatic enzyme increased [Recovered/Resolved]
